FAERS Safety Report 6416881-6 (Version None)
Quarter: 2009Q4

REPORT INFORMATION
  Report Type: 
  Country: None (occurrence: None)
  Receive Date: 20091023
  Receipt Date: 20091013
  Transmission Date: 20100525
  Serious: Yes (Hospitalization, Other)
  Sender: FDA-Public Use
  Company Number: ADR42912009

PATIENT
  Sex: Female

DRUGS (3)
  1. RISPERIDONE [Suspect]
  2. AMISULPRIDE [Concomitant]
  3. CLOZARIL [Concomitant]

REACTIONS (5)
  - DYSPNOEA [None]
  - ELECTROCARDIOGRAM QT PROLONGED [None]
  - MENTAL DISORDER [None]
  - TACHYCARDIA [None]
  - TREATMENT NONCOMPLIANCE [None]
